FAERS Safety Report 4711124-3 (Version None)
Quarter: 2005Q3

REPORT INFORMATION
  Report Type: 
  Country: None (occurrence: None)
  Receive Date: 20050708
  Receipt Date: 20050624
  Transmission Date: 20060218
  Serious: Yes (Life-Threatening)
  Sender: FDA-Public Use
  Company Number: S05-SWI-02300-01

PATIENT
  Age: 59 Year
  Sex: Female

DRUGS (23)
  1. CIPRALEX (ESCITALOPRAM) [Suspect]
     Dosage: 20 MG QD PO
     Route: 048
  2. FRAXIPARINE (HEPARIN-FRACTION CALCIUM SALT) [Suspect]
     Dosage: 0.4 ML QD SC
     Route: 058
     Dates: start: 20050203, end: 20050220
  3. FRAXIPARINE (HEPARIN-FRACTION, CALCIUM SALT) [Suspect]
     Dosage: 0.6 ML QD SC
     Route: 058
     Dates: start: 20050221, end: 20050313
  4. SINTRON MITIS (ACENOCOUMAROL) [Suspect]
     Dosage: MG QD PO
     Route: 048
     Dates: end: 20050223
  5. SINTROM MITIS (ACENOCOUMAROL) [Suspect]
     Dosage: MG QD PO
     Route: 048
     Dates: start: 20050225
  6. ASPIRIN [Suspect]
     Dosage: 300 MG QD PO
     Route: 048
  7. ZOCOR [Suspect]
     Dosage: 20 MG QD PO
     Route: 048
  8. ANTRA (0MEPRAZOLE) [Suspect]
     Dosage: 20 MG BID PO
     Route: 048
  9. XENICAL [Suspect]
     Dosage: 120 MG BID PO
     Route: 048
  10. DAFLON (DIOSMIN) [Concomitant]
  11. XANAX [Concomitant]
  12. RIVOTRIL (CLONAZEPAM) [Concomitant]
  13. BENERVA (THIAMINE HYDROCHLORIDE) [Concomitant]
  14. BECOZYME C [Concomitant]
  15. MADOPAR [Concomitant]
  16. VITAMIN B6 [Concomitant]
  17. ROHYPNOL (FLUNITRAZEPAM) [Concomitant]
  18. DHEA [Concomitant]
  19. EFFORTIL PLUS [Concomitant]
  20. DUSPATALIN (MEBEVERINE) [Concomitant]
  21. TILUE (ACEMETACIN) [Concomitant]
  22. KAPANOL (MORPHINE SULFATE) [Concomitant]
  23. MORPHINE [Concomitant]

REACTIONS (13)
  - CARDIAC PERFORATION [None]
  - CARDIAC TAMPONADE [None]
  - CARDIOGENIC SHOCK [None]
  - COAGULATION TIME ABNORMAL [None]
  - ELECTROMECHANICAL DISSOCIATION [None]
  - INFECTION [None]
  - INTESTINAL ISCHAEMIA [None]
  - ISCHAEMIC HEPATITIS [None]
  - LUNG INFILTRATION [None]
  - MULTI-ORGAN FAILURE [None]
  - PERICARDIAL HAEMORRHAGE [None]
  - RENAL FAILURE [None]
  - SKIN ULCER [None]
